FAERS Safety Report 8516654-4 (Version None)
Quarter: 2012Q3

REPORT INFORMATION
  Report Type: 
  Country: None (occurrence: None)
  Receive Date: 20120718
  Receipt Date: 20120709
  Transmission Date: 20120928
  Serious: Yes (Hospitalization, Other)
  Sender: FDA-Public Use
  Company Number: JP-JNJFOC-20120705065

PATIENT
  Sex: Female
  Weight: 61 kg

DRUGS (5)
  1. REMICADE [Suspect]
     Route: 042
     Dates: start: 20110726
  2. SULFAMETHOXAZOLE AND TRIMETHOPRIM [Concomitant]
     Route: 048
     Dates: start: 20110801, end: 20120709
  3. TIGASON [Concomitant]
     Route: 048
     Dates: end: 20120709
  4. REMICADE [Suspect]
     Indication: PUSTULAR PSORIASIS
     Route: 042
     Dates: start: 20120419
  5. REMICADE [Suspect]
     Dosage: 2ND INFUSION
     Route: 042

REACTIONS (2)
  - CELL MARKER INCREASED [None]
  - INTERSTITIAL LUNG DISEASE [None]
